FAERS Safety Report 7823720-5 (Version None)
Quarter: 2011Q4

REPORT INFORMATION
  Report Type: 
  Country: None (occurrence: None)
  Receive Date: 20111019
  Receipt Date: 20111013
  Transmission Date: 20120403
  Serious: No
  Sender: FDA-Public Use
  Company Number: US-PFIZER INC-2011246528

PATIENT
  Sex: Male
  Weight: 67.12 kg

DRUGS (5)
  1. TOBRAMYCIN [Suspect]
     Indication: BRONCHIECTASIS
  2. ADVAIR DISKUS 100/50 [Concomitant]
     Indication: PNEUMONITIS
  3. LIPITOR [Concomitant]
     Indication: BLOOD CHOLESTEROL INCREASED
     Dosage: 10 MG, 1X/DAY
     Route: 048
  4. TOBRAMYCIN [Suspect]
     Indication: PSEUDOMONAS INFECTION
     Dosage: 240 MG, 1X/DAY
     Dates: start: 20111006
  5. ADVAIR DISKUS 100/50 [Concomitant]
     Indication: BRONCHIECTASIS
     Dosage: UNK, TWO PUFFS TWICE A DAY

REACTIONS (1)
  - DYSGEUSIA [None]
